FAERS Safety Report 9833177 (Version 2)
Quarter: 2014Q2

REPORT INFORMATION
  Report Type: Report from Study
  Country: US (occurrence: US)
  Receive Date: 20140121
  Receipt Date: 20140502
  Transmission Date: 20141212
  Serious: Yes (Death)
  Sender: FDA-Public Use
  Company Number: US-ABBVIE-14P-163-1191588-00

PATIENT
  Age: 82 Year
  Sex: Male

DRUGS (2)
  1. ANDROGEL [Suspect]
     Indication: TESTICULAR FAILURE
     Dosage: 1 PUMP DEPRESSION DAILY
     Dates: start: 20130619
  2. ANDROGEL [Suspect]
     Indication: HYPOGONADISM
     Dosage: 5 GRAM PACKET. 1 PACKET DAILY
     Dates: start: 201312, end: 201312

REACTIONS (1)
  - Death [Fatal]
